FAERS Safety Report 9866353 (Version 2)
Quarter: 2014Q1

REPORT INFORMATION
  Report Type: Spontaneous
  Country: US (occurrence: US)
  Receive Date: 20140203
  Receipt Date: 20140203
  Transmission Date: 20141002
  Serious: No
  Sender: FDA-Public Use
  Company Number: US-ALLERGAN-1319962US

PATIENT
  Age: 63 Year
  Sex: Female

DRUGS (7)
  1. RESTASIS [Suspect]
     Indication: DRY EYE
     Dosage: 2 GTT, UNK
     Route: 047
     Dates: start: 20131112
  2. RESTASIS [Suspect]
     Indication: CORNEAL ABRASION
  3. REFRESH OPTIVE [Concomitant]
     Indication: EYE LUBRICATION THERAPY
     Dosage: 2 GTT, UNK
     Route: 047
  4. REFRESH OPTIVE [Concomitant]
     Dosage: 2 GTT, BID
     Route: 047
  5. MELOXICAM [Concomitant]
     Indication: INFLAMMATION
     Dosage: 7.5 MG, UNK
     Route: 048
  6. LOSARTAN [Concomitant]
     Indication: HYPERTENSION
     Dosage: 25 MG, BID
     Route: 048
     Dates: start: 20131217
  7. LOSARTAN [Concomitant]
     Dosage: 25 MG QD
     Route: 048
     Dates: end: 20131217

REACTIONS (6)
  - Dry mouth [Recovering/Resolving]
  - Nervousness [Recovering/Resolving]
  - Blood pressure increased [Recovering/Resolving]
  - Heart rate increased [Recovering/Resolving]
  - Flushing [Recovering/Resolving]
  - Off label use [Unknown]
